FAERS Safety Report 6137946-2 (Version None)
Quarter: 2009Q1

REPORT INFORMATION
  Report Type: 
  Country: None (occurrence: None)
  Receive Date: 20090331
  Receipt Date: 20090330
  Transmission Date: 20090719
  Serious: Yes (Other)
  Sender: FDA-Public Use
  Company Number: US-PFIZER INC-2008092949

PATIENT
  Sex: Female

DRUGS (6)
  1. CADUET [Suspect]
  2. SIMVASTATIN [Suspect]
     Dates: start: 20080101, end: 20080101
  3. CARDIOVASCULAR SYSTEM DRUGS [Suspect]
     Dates: start: 20080101
  4. DRUG, UNSPECIFIED [Concomitant]
  5. DRUG, UNSPECIFIED [Concomitant]
  6. CARDIOVASCULAR SYSTEM DRUGS [Concomitant]

REACTIONS (13)
  - CHEST PAIN [None]
  - DIABETES MELLITUS [None]
  - DRUG CLEARANCE DECREASED [None]
  - DRY EYE [None]
  - HYPERHIDROSIS [None]
  - HYPERSENSITIVITY [None]
  - HYPOACUSIS [None]
  - MALAISE [None]
  - MUSCLE SPASMS [None]
  - NAUSEA [None]
  - PAIN [None]
  - PRESYNCOPE [None]
  - TREMOR [None]
